FAERS Safety Report 5534342-3 (Version None)
Quarter: 2007Q4

REPORT INFORMATION
  Report Type: 
  Country: None (occurrence: None)
  Receive Date: 20071130
  Receipt Date: 20071114
  Transmission Date: 20080405
  Serious: Yes (Death)
  Sender: FDA-Public Use
  Company Number: 001#1#2007-00715

PATIENT

DRUGS (1)
  1. NEUPRO [Suspect]
     Indication: PARKINSON'S DISEASE
     Dosage: TRANSDERMAL
     Route: 062

REACTIONS (1)
  - CONDITION AGGRAVATED [None]
